FAERS Safety Report 9063963 (Version 1)
Quarter: 2013Q1

REPORT INFORMATION
  Report Type: Report from Study
  Country: US (occurrence: US)
  Receive Date: 20130130
  Receipt Date: 20130130
  Transmission Date: 20140127
  Serious: Yes (Hospitalization, Other)
  Sender: FDA-Public Use
  Company Number: US-ABBOTT-12P-163-0946000-00

PATIENT
  Age: 57 Year
  Sex: Male

DRUGS (11)
  1. HUMIRA 40 MG/0.8 ML PEN [Suspect]
     Indication: PSORIATIC ARTHROPATHY
     Dosage: INTERRUPTED
     Dates: start: 20081201, end: 20111225
  2. DIEVOLANEX [Concomitant]
     Indication: DEPRESSION
  3. DIEVOLANEX [Concomitant]
     Indication: INSOMNIA
  4. TRAZODONE [Concomitant]
     Indication: DEPRESSION
  5. TRAZODONE [Concomitant]
     Indication: INSOMNIA
  6. LORAZEPAM [Concomitant]
     Indication: DEPRESSION
  7. LORAZEPAM [Concomitant]
     Indication: INSOMNIA
  8. SERTRALINE [Concomitant]
     Indication: DEPRESSION
  9. SERTRALINE [Concomitant]
     Indication: INSOMNIA
  10. MULTIVITAMINS [Concomitant]
     Indication: DEPRESSION
  11. MULTIVITAMINS [Concomitant]
     Indication: INSOMNIA

REACTIONS (5)
  - Fall [Recovered/Resolved]
  - Hip fracture [Recovered/Resolved]
  - Psoriatic arthropathy [Unknown]
  - Depression [Unknown]
  - Insomnia [Unknown]
